FAERS Safety Report 8021314-2 (Version None)
Quarter: 2012Q1

REPORT INFORMATION
  Report Type: 
  Country: None (occurrence: None)
  Receive Date: 20120104
  Receipt Date: 20111229
  Transmission Date: 20120608
  Serious: Yes (Hospitalization)
  Sender: FDA-Public Use
  Company Number: US-JNJFOC-20120100026

PATIENT
  Sex: Female
  Weight: 60.33 kg

DRUGS (4)
  1. RISPERDAL [Suspect]
     Indication: INJURY
     Route: 065
     Dates: start: 20110101, end: 20111001
  2. RISPERDAL [Suspect]
     Indication: AFFECTIVE DISORDER
     Route: 065
     Dates: start: 20110101, end: 20111001
  3. RISPERDAL [Suspect]
     Indication: SLEEP DISORDER
     Route: 065
     Dates: start: 20110101, end: 20111001
  4. PAIN MEDICATION UNSPECIFIED [Concomitant]
     Indication: PAIN
     Route: 065

REACTIONS (6)
  - BEDRIDDEN [None]
  - FRACTURE [None]
  - LACERATION [None]
  - WEIGHT DECREASED [None]
  - ROAD TRAFFIC ACCIDENT [None]
  - ANXIETY [None]
